FAERS Safety Report 16843742 (Version 3)
Quarter: 2019Q4

REPORT INFORMATION
  Report Type: Spontaneous
  Country: PT (occurrence: PT)
  Receive Date: 20190924
  Receipt Date: 20191022
  Transmission Date: 20200122
  Serious: Yes (Hospitalization, Other)
  Sender: FDA-Public Use
  Company Number: PT-GILEAD-2019-0430049

PATIENT
  Age: 49 Year
  Sex: Male

DRUGS (1)
  1. HARVONI [Suspect]
     Active Substance: LEDIPASVIR\SOFOSBUVIR
     Indication: CHRONIC HEPATITIS C
     Dosage: UNK
     Route: 065
     Dates: start: 20190622, end: 20190812

REACTIONS (4)
  - Treatment noncompliance [Unknown]
  - Encephalopathy [Not Recovered/Not Resolved]
  - Hepatitis C virus test positive [Unknown]
  - Product use issue [Unknown]

NARRATIVE: CASE EVENT DATE: 201909
